FAERS Safety Report 20404457 (Version 1)
Quarter: 2022Q1

REPORT INFORMATION
  Report Type: Spontaneous
  Country: US (occurrence: US)
  Receive Date: 20220131
  Receipt Date: 20220131
  Transmission Date: 20220423
  Serious: Yes (Other)
  Sender: FDA-Public Use
  Company Number: US-TEVA-2020-US-1216002

PATIENT
  Age: 42 Year
  Sex: Female
  Weight: 122.5 kg

DRUGS (14)
  1. FENTANYL TRANSDERMAL SYSTEM [Suspect]
     Active Substance: FENTANYL
     Dosage: THE SUSPECT MEDICATION WAS TAKEN BY THE BIOLOGICAL FATHER
     Route: 065
  2. BUPROPION HYDROCHLORIDE [Suspect]
     Active Substance: BUPROPION HYDROCHLORIDE
     Dosage: 1 TAB ORALLY FOR 3 DAYS, THEN 1 TAB ORALLY 2 TIMES A DAY FOR AT LEAST WEEKS
     Route: 048
     Dates: start: 20100505, end: 20110205
  3. ERYTHROMYCIN BASE [Suspect]
     Active Substance: ERYTHROMYCIN
     Route: 065
  4. VICODIN [Suspect]
     Active Substance: ACETAMINOPHEN\HYDROCODONE BITARTRATE
     Indication: Back pain
     Dosage: ACETAMINOPHEN 5 MG, HYDROCODONE 500 MG, DO NOT TAKE MORE THAN 8 TABLETS A DAY
     Route: 048
     Dates: start: 20080205
  5. PERCOCET [Suspect]
     Active Substance: ACETAMINOPHEN\OXYCODONE HYDROCHLORIDE
     Indication: Back pain
     Route: 048
     Dates: start: 2009
  6. NORCO [Suspect]
     Active Substance: ACETAMINOPHEN\HYDROCODONE BITARTRATE
     Indication: Pain
     Dosage: ACETAMINOPHEN 10 MG, HYDROCODONE 325 MG, DO NOT EXCEED 4 TABLETS IN 24 HOURS
     Route: 048
     Dates: start: 20100413
  7. AMBIEN [Suspect]
     Active Substance: ZOLPIDEM TARTRATE
     Indication: Sleep disorder
     Dosage: 10 MILLIGRAM DAILY; AT BEDTIME
     Route: 048
     Dates: start: 20080226
  8. SOMA [Suspect]
     Active Substance: CARISOPRODOL
     Indication: Muscle spasms
     Route: 048
     Dates: start: 20080221
  9. MORPHINE [Suspect]
     Active Substance: MORPHINE
     Dosage: THE SUSPECT MEDICATION WAS TAKEN BY THE BIOLOGICAL FATHER
     Route: 065
  10. DILAUDID [Suspect]
     Active Substance: HYDROMORPHONE HYDROCHLORIDE
     Dosage: THE SUSPECT MEDICATION WAS TAKEN BY THE BIOLOGICAL FATHER
     Route: 065
  11. ALCOHOL [Suspect]
     Active Substance: ALCOHOL
     Route: 065
  12. CANNABIS SATIVA SUBSP. INDICA TOP [Suspect]
     Active Substance: CANNABIS SATIVA SUBSP. INDICA TOP
     Dosage: 2 HITS
     Route: 065
     Dates: start: 20100528
  13. NICOTINE [Concomitant]
     Active Substance: NICOTINE
     Dosage: 21 MG/ 24 HR, APPLY 1 PATCH TO CLEAN, DRY SKIN DAILY FOR 4 WEEKS. APPLY TO A DIFFERENT SITE EACH DAY
     Route: 062
     Dates: start: 20090709
  14. NITROFURANTOIN MONOHYDRATE [Concomitant]
     Active Substance: NITROFURANTOIN MONOHYDRATE
     Dosage: 50 MILLIGRAM DAILY; WITH FOOD
     Route: 048
     Dates: start: 20080929

REACTIONS (25)
  - Drug dependence [Unknown]
  - Urinary retention [Unknown]
  - Maternal use of illicit drugs [Unknown]
  - Arrhythmia [Unknown]
  - Maternal exposure during pregnancy [Unknown]
  - Paternal exposure timing unspecified [Unknown]
  - Live birth [Unknown]
  - Vaginal haemorrhage [Recovered/Resolved]
  - Vulvovaginal pain [Unknown]
  - Insomnia [Unknown]
  - Palpitations [Recovered/Resolved]
  - Haemorrhoids [Recovered/Resolved]
  - Constipation [Unknown]
  - Vulvovaginal candidiasis [Unknown]
  - Headache [Unknown]
  - Urinary tract infection [Unknown]
  - Depression [Unknown]
  - Abdominal pain [Unknown]
  - Leukocytosis [Recovered/Resolved]
  - Nausea [Unknown]
  - Vomiting [Unknown]
  - Vaginal discharge [Unknown]
  - Dyspnoea [Unknown]
  - Vulvovaginal swelling [Unknown]
  - Dysuria [Recovering/Resolving]

NARRATIVE: CASE EVENT DATE: 20100101
